APPROVED DRUG PRODUCT: LOPERAMIDE HYDROCHLORIDE
Active Ingredient: LOPERAMIDE HYDROCHLORIDE
Strength: 1MG/5ML
Dosage Form/Route: SOLUTION;ORAL
Application: A074991 | Product #001
Applicant: DURAMED PHARMACEUTICALS INC SUB BARR LABORATORIES INC
Approved: Dec 29, 1997 | RLD: No | RS: No | Type: DISCN